FAERS Safety Report 10313132 (Version 4)
Quarter: 2014Q4

REPORT INFORMATION
  Report Type: Spontaneous
  Country: US (occurrence: US)
  Receive Date: 20140718
  Receipt Date: 20141006
  Transmission Date: 20150528
  Serious: Yes (Hospitalization, Other)
  Sender: FDA-Public Use
  Company Number: US-PFIZER INC-2014198654

PATIENT
  Age: 11 Year
  Sex: Female

DRUGS (22)
  1. BACTRIM [Concomitant]
     Active Substance: SULFAMETHOXAZOLE\TRIMETHOPRIM
     Indication: PROPHYLAXIS
     Dosage: 40 MG, 2 TIMES A DAY
  2. REFRESH TEARS [Concomitant]
     Active Substance: CARBOXYMETHYLCELLULOSE SODIUM
     Dosage: 2 GTT, 3X/DAY
     Route: 047
  3. SORAFENIB [Concomitant]
     Active Substance: SORAFENIB
     Dosage: 30 MG, 2 TIMES A DAY
     Route: 048
  4. CALCIUM [Concomitant]
     Active Substance: CALCIUM
     Dosage: UNK
  5. ORAPRED [Concomitant]
     Active Substance: PREDNISOLONE SODIUM PHOSPHATE
     Indication: GRAFT VERSUS HOST DISEASE
     Dosage: 4.5 MG, 1X/DAY
     Route: 048
  6. LEVOXYL [Concomitant]
     Active Substance: LEVOTHYROXINE SODIUM
     Indication: HYPOTHYROIDISM
     Dosage: 62.5 UG, 1X/DAY
     Route: 048
  7. ELEMENTAL CALCIUM [Concomitant]
     Dosage: 500 MG, 1X/DAY
  8. QUERCETIN [Concomitant]
     Active Substance: QUERCETIN
     Dosage: 250 MG, 2 TIMES A DAY
     Route: 048
  9. PROTONIX [Concomitant]
     Active Substance: PANTOPRAZOLE SODIUM
     Dosage: 20 MG, 1X/DAY
     Route: 048
  10. DRISDOL [Concomitant]
     Active Substance: ERGOCALCIFEROL
     Indication: VITAMIN D DEFICIENCY
     Dosage: 4000 IU, 1X/DAY
  11. BENADRYL [Concomitant]
     Active Substance: DIPHENHYDRAMINE HYDROCHLORIDE
     Indication: SLEEP DISORDER
     Dosage: 8 MG AT BEDTIME AS NEEDED
     Route: 048
  12. GENOTROPIN [Suspect]
     Active Substance: SOMATROPIN
     Indication: GROWTH HORMONE DEFICIENCY
     Dosage: 0.8 MG, DAILY (5 Q )
     Route: 058
     Dates: start: 2014, end: 20140715
  13. NORVASC [Concomitant]
     Active Substance: AMLODIPINE BESYLATE
     Dosage: 1.5 MG, 1X/DAY
  14. IMMUNE GLOBULIN [Concomitant]
     Active Substance: HUMAN IMMUNOGLOBULIN G
     Indication: IMMUNE SYSTEM DISORDER
     Dosage: 15 G, MONTHLY
     Route: 042
  15. BENADRYL [Concomitant]
     Active Substance: DIPHENHYDRAMINE HYDROCHLORIDE
     Indication: PRURITUS
  16. DISPROL [Concomitant]
     Dosage: UNK
  17. SYNTHROID [Concomitant]
     Active Substance: LEVOTHYROXINE SODIUM
     Indication: HYPOTHYROIDISM
     Dosage: UNK UG, DAILY
     Route: 048
     Dates: start: 2004
  18. DELSYM [Concomitant]
     Active Substance: DEXTROMETHORPHAN
     Indication: COUGH
     Dosage: 15 MG, EVERY 12 HOURS AS NEEDED
  19. REFRESH TEARS [Concomitant]
     Active Substance: CARBOXYMETHYLCELLULOSE SODIUM
     Indication: DRY EYE
     Dosage: 1 GTT, 4 TIMES A DAY AS NEEDED
     Route: 047
  20. ACTIGALL [Concomitant]
     Active Substance: URSODIOL
     Dosage: 150 MG, 3 TIMES A DAY
     Dates: start: 20140626
  21. PULMICORT TURBUHALER [Concomitant]
     Active Substance: BUDESONIDE
     Indication: OESOPHAGITIS
     Dosage: 0.25 MG, 1X/DAY
     Route: 048
  22. MYCOSTATIN [Concomitant]
     Active Substance: NYSTATIN
     Indication: PROPHYLAXIS
     Dosage: 5 ML, 3X/DAY (EVERY 8 HOURS)
     Route: 048

REACTIONS (6)
  - Bilirubin conjugated increased [Unknown]
  - Hepatic mass [Not Recovered/Not Resolved]
  - Eye disorder [Unknown]
  - Ocular icterus [Unknown]
  - Decreased appetite [Unknown]
  - Hepatocellular carcinoma [Not Recovered/Not Resolved]

NARRATIVE: CASE EVENT DATE: 20140626
